FAERS Safety Report 19397227 (Version 5)
Quarter: 2021Q4

REPORT INFORMATION
  Report Type: Report from Study
  Country: US (occurrence: US)
  Receive Date: 20210610
  Receipt Date: 20211204
  Transmission Date: 20220303
  Serious: Yes (Other)
  Sender: FDA-Public Use
  Company Number: NVSC2021US121566

PATIENT
  Sex: Male

DRUGS (1)
  1. ENTRESTO [Suspect]
     Active Substance: SACUBITRIL\VALSARTAN
     Indication: Product used for unknown indication
     Dosage: 50 MG (26/24 MG), BID
     Route: 065
     Dates: start: 20210501

REACTIONS (7)
  - Deafness [Unknown]
  - Weight decreased [Unknown]
  - Fluid retention [Unknown]
  - Hyperhidrosis [Unknown]
  - Weight increased [Unknown]
  - Product availability issue [Unknown]
  - Inappropriate schedule of product administration [Unknown]
